FAERS Safety Report 15719399 (Version 1)
Quarter: 2018Q4

REPORT INFORMATION
  Report Type: Spontaneous
  Country: US (occurrence: US)
  Receive Date: 20181213
  Receipt Date: 20181213
  Transmission Date: 20190205
  Serious: Yes (Hospitalization)
  Sender: FDA-Public Use
  Company Number: US-LANNETT COMPANY, INC.-US-2018LAN001383

PATIENT
  Age: 37 Year
  Sex: Female
  Weight: 60 kg

DRUGS (6)
  1. MORPHINE SULFATE. [Suspect]
     Active Substance: MORPHINE SULFATE
     Dosage: 450 MG, QD (ADDITIONAL, AS NEEDED)
     Route: 048
  2. MORPHINE SULFATE. [Suspect]
     Active Substance: MORPHINE SULFATE
     Indication: BREAKTHROUGH PAIN
     Dosage: 300 MG, QD
     Route: 048
  3. MORPHINE SULFATE. [Suspect]
     Active Substance: MORPHINE SULFATE
     Dosage: 334 MME, QD (ON HOSPITAL DAY 2)
     Route: 048
  4. KETAMINE [Concomitant]
     Active Substance: KETAMINE
     Indication: BREAKTHROUGH PAIN
     Dosage: 5 ?G/KG PER MINUTE (TITRATED)
  5. MORPHINE SULFATE. [Suspect]
     Active Substance: MORPHINE SULFATE
     Dosage: 330 MME, QD (DECREASED)
     Route: 048
  6. KETAMINE [Concomitant]
     Active Substance: KETAMINE
     Indication: ADJUVANT THERAPY
     Dosage: 1 ?G/KG PER MINUTE

REACTIONS (1)
  - Hyperaesthesia [Unknown]
